FAERS Safety Report 8934068 (Version 1)
Quarter: 2012Q4

REPORT INFORMATION
  Report Type: 
  Country: GB (occurrence: GB)
  Receive Date: 20121129
  Receipt Date: 20121129
  Transmission Date: 20130627
  Serious: Yes (Hospitalization)
  Sender: FDA-Public Use
  Company Number: GB-PFIZER INC-2012296833

PATIENT
  Age: 84 Year
  Sex: Male
  Weight: 73 kg

DRUGS (12)
  1. GENOTROPIN [Suspect]
     Dosage: 0.3 mg, 1x/day, 7 injections/week
     Route: 058
     Dates: start: 20071204
  2. TESTOSTERONE [Concomitant]
     Indication: LUTEINIZING HORMONE DEFICIENCY
     Dosage: UNK
     Dates: start: 19970728
  3. TESTOSTERONE [Concomitant]
     Indication: FOLLICLE-STIMULATING HORMONE DEFICIENCY
  4. TESTOSTERONE [Concomitant]
     Indication: TESTICULAR HYPOGONADISM
  5. THYROXINE [Concomitant]
     Indication: TSH DECREASED
     Dosage: UNK
     Dates: start: 19970728
  6. THYROXINE [Concomitant]
     Indication: PRIMARY HYPOTHYROIDISM
  7. OMEPRAZOLE [Concomitant]
     Indication: GASTRIC ULCER
     Dosage: UNK
     Dates: start: 20090127
  8. OMEPRAZOLE [Concomitant]
     Indication: DUODENAL ULCER
  9. ANDROPATCH [Concomitant]
     Indication: LUTEINIZING HORMONE DEFICIENCY
     Dosage: UNK
     Dates: start: 19981209
  10. ANDROPATCH [Concomitant]
     Indication: FOLLICLE-STIMULATING HORMONE DEFICIENCY
  11. ANDROPATCH [Concomitant]
     Indication: TESTICULAR HYPOGONADISM
  12. CALCICHEW [Concomitant]
     Indication: OSTEOPOROSIS
     Dosage: UNK
     Dates: start: 20030827

REACTIONS (1)
  - Gastric disorder [Unknown]
